FAERS Safety Report 9670865 (Version 1)
Quarter: 2013Q4

REPORT INFORMATION
  Report Type: Report from Study
  Country: US (occurrence: US)
  Receive Date: 20131106
  Receipt Date: 20131106
  Transmission Date: 20140711
  Serious: Yes (Other)
  Sender: FDA-Public Use
  Company Number: PHEH2013US022887

PATIENT
  Sex: Male

DRUGS (2)
  1. AFINITOR [Suspect]
     Indication: RENAL CELL CARCINOMA
     Dosage: 10 MG, QD
     Route: 048
  2. INSULIN [Concomitant]

REACTIONS (4)
  - Pulmonary mass [Unknown]
  - Pancreatic neoplasm [Unknown]
  - Gallbladder neoplasm [Unknown]
  - Blood glucose abnormal [Unknown]
